FAERS Safety Report 19037722 (Version 1)
Quarter: 2021Q1

REPORT INFORMATION
  Report Type: Spontaneous
  Country: US (occurrence: US)
  Receive Date: 20210322
  Receipt Date: 20210322
  Transmission Date: 20210420
  Serious: Yes (Hospitalization)
  Sender: FDA-Public Use
  Company Number: None

PATIENT
  Age: 20 Year
  Sex: Male
  Weight: 67.5 kg

DRUGS (4)
  1. GABAPENTIN 100MG [Concomitant]
     Active Substance: GABAPENTIN
     Dates: start: 20210201
  2. ABILIFY [Suspect]
     Active Substance: ARIPIPRAZOLE
     Indication: OBSESSIVE-COMPULSIVE DISORDER
     Route: 048
     Dates: start: 20210307, end: 20210316
  3. LEXAPRO [Concomitant]
     Active Substance: ESCITALOPRAM OXALATE
     Dates: start: 20201201
  4. LORAZEPAM. [Concomitant]
     Active Substance: LORAZEPAM
     Dates: start: 20210317

REACTIONS (7)
  - Gambling disorder [None]
  - Palpitations [None]
  - Anxiety [None]
  - Hyperhidrosis [None]
  - Tremor [None]
  - Aggression [None]
  - Tachyphrenia [None]

NARRATIVE: CASE EVENT DATE: 20210317
